FAERS Safety Report 4800344-5 (Version None)
Quarter: 2005Q4

REPORT INFORMATION
  Report Type: 
  Country: None (occurrence: None)
  Receive Date: 20051012
  Receipt Date: 20051004
  Transmission Date: 20060501
  Serious: Yes (Death)
  Sender: FDA-Public Use
  Company Number: 2005-BP-12458RO

PATIENT
  Sex: Female
  Weight: 106.6 kg

DRUGS (4)
  1. METHADONE HCL [Suspect]
     Dosage: 5 MG BID (5 MG), PO  1 TO 2 WEEKS
     Route: 048
  2. SEROQUEL [Suspect]
     Dosage: 125 MG QHS PO    1 TO 2 WEEKS
     Route: 048
  3. LEXAPRO [Suspect]
     Dosage: 10 MG/DAY PO  1 TO 2 WEEKS
     Route: 048
  4. XELODA [Concomitant]

REACTIONS (3)
  - AMMONIA INCREASED [None]
  - BLOOD BILIRUBIN INCREASED [None]
  - MENTAL STATUS CHANGES [None]
